FAERS Safety Report 7909436 (Version 2)
Quarter: 2016Q3

REPORT INFORMATION
  Report Type: Report from Study
  Country: US (occurrence: US)
  Receive Date: 20110421
  Receipt Date: 20160907
  Transmission Date: 20161109
  Serious: No
  Sender: FDA-Public Use
  Company Number: US-ASTRAZENECA-2010SE31321

PATIENT
  Age: 62 Year
  Sex: Female

DRUGS (3)
  1. TOPROL XL [Suspect]
     Active Substance: METOPROLOL SUCCINATE
     Indication: MITRAL VALVE PROLAPSE
     Route: 048
     Dates: start: 2010
  2. TOPROL XL [Suspect]
     Active Substance: METOPROLOL SUCCINATE
     Indication: MITRAL VALVE PROLAPSE
     Route: 048
  3. TOPROL XL [Suspect]
     Active Substance: METOPROLOL SUCCINATE
     Indication: MITRAL VALVE PROLAPSE
     Dosage: METOPROLOL SUCCINATE UNK MANUFACTURER, 50 MG DAILY
     Route: 048

REACTIONS (8)
  - Road traffic accident [Unknown]
  - Memory impairment [Unknown]
  - Gastric disorder [Unknown]
  - Palpitations [Unknown]
  - Nausea [Unknown]
  - Drug dose omission [Unknown]
  - Head injury [Unknown]
  - Malaise [Unknown]

NARRATIVE: CASE EVENT DATE: 2009
